FAERS Safety Report 10036320 (Version 2)
Quarter: 2014Q1

REPORT INFORMATION
  Report Type: Report from Study
  Country: US (occurrence: US)
  Receive Date: 20140325
  Receipt Date: 20140325
  Transmission Date: 20141002
  Serious: Yes (Hospitalization)
  Sender: FDA-Public Use
  Company Number: US-IPSEN BIOPHARMACEUTICALS, INC.-2013-4760

PATIENT
  Age: 68 Year
  Sex: Male
  Weight: 136 kg

DRUGS (3)
  1. SOMATULINE DEPOT INJECTION (90MG) [Suspect]
     Indication: ACROMEGALY
     Dosage: 90MG EVERY 28 DAYS
     Route: 058
     Dates: start: 20130306
  2. PRADAXA [Suspect]
     Indication: PRODUCT USED FOR UNKNOWN INDICATION
     Dosage: NOT REPORTED
     Route: 065
  3. SUPPLEMENTS [Concomitant]
     Indication: PRODUCT USED FOR UNKNOWN INDICATION
     Dosage: NOT REPORTED
     Route: 065

REACTIONS (3)
  - Ulcer haemorrhage [Unknown]
  - Dysarthria [Unknown]
  - Fatigue [Unknown]
